FAERS Safety Report 6519800-7 (Version None)
Quarter: 2009Q4

REPORT INFORMATION
  Report Type: 
  Country: None (occurrence: None)
  Receive Date: 20091228
  Receipt Date: 20091228
  Transmission Date: 20100525
  Serious: Yes (Hospitalization)
  Sender: FDA-Public Use
  Company Number: None

PATIENT
  Sex: Female
  Weight: 22.4 kg

DRUGS (6)
  1. CYCLOPHOSPHAMIDE [Suspect]
     Dosage: 1680 MG
  2. CYTARABINE [Suspect]
     Dosage: 992 MG
  3. MERCAPTOPURINE [Suspect]
     Dosage: 1400 MG
  4. METHOTREXATE [Suspect]
     Dosage: 48 MG
  5. ONCASPAR [Suspect]
     Dosage: 4100 IU
  6. VINCRISTINE SULFATE [Suspect]
     Dosage: 4.9 MG

REACTIONS (9)
  - BLOOD CULTURE POSITIVE [None]
  - ESCHERICHIA BACTERAEMIA [None]
  - INTRACARDIAC THROMBUS [None]
  - NEUTROPENIA [None]
  - PNEUMONIA NECROTISING [None]
  - PULMONARY THROMBOSIS [None]
  - RESPIRATORY DISTRESS [None]
  - STAPHYLOCOCCAL INFECTION [None]
  - VENOUS THROMBOSIS [None]
